FAERS Safety Report 8176992-4 (Version None)
Quarter: 2012Q1

REPORT INFORMATION
  Report Type: 
  Country: None (occurrence: None)
  Receive Date: 20120301
  Receipt Date: 20120221
  Transmission Date: 20120608
  Serious: Yes (Other)
  Sender: FDA-Public Use
  Company Number: US-ABBOTT-12P-163-0907171-00

PATIENT
  Sex: Female
  Weight: 90.8 kg

DRUGS (5)
  1. HUMIRA [Suspect]
     Indication: RHEUMATOID ARTHRITIS
     Dates: start: 20100201, end: 20100801
  2. HUMIRA [Suspect]
     Dates: start: 20100801
  3. IOHEXOL [Concomitant]
     Indication: SCAN WITH CONTRAST
  4. IOHEXOL [Concomitant]
     Indication: COMPUTERISED TOMOGRAM
     Route: 042
     Dates: start: 20111118, end: 20111118
  5. ZYRTEC [Concomitant]
     Indication: HYPERSENSITIVITY

REACTIONS (11)
  - HERPES ZOSTER [None]
  - PELVIC INFLAMMATORY DISEASE [None]
  - WHITE BLOOD CELL COUNT INCREASED [None]
  - NAUSEA [None]
  - NASOPHARYNGITIS [None]
  - SKIN BURNING SENSATION [None]
  - PAIN [None]
  - ABDOMINAL PAIN [None]
  - OVARIAN ENLARGEMENT [None]
  - PLEURAL EFFUSION [None]
  - PAIN IN EXTREMITY [None]
